FAERS Safety Report 5185087-3 (Version None)
Quarter: 2006Q4

REPORT INFORMATION
  Report Type: 
  Country: None (occurrence: None)
  Receive Date: 20061220
  Receipt Date: 20061206
  Transmission Date: 20070319
  Serious: Yes (Death)
  Sender: FDA-Public Use
  Company Number: US-ELI_LILLY_AND_COMPANY-US200612001231

PATIENT
  Age: 31 Year
  Sex: Male

DRUGS (4)
  1. FORTEO [Suspect]
     Indication: HYPOPARATHYROIDISM
     Dosage: UNK, UNK
     Dates: start: 20050101
  2. CALCITRIOL [Concomitant]
     Dosage: UNK, UNK
     Dates: start: 19800101, end: 20050101
  3. ORAL HYPOGLYCEMIC AGENT [Concomitant]
  4. UNSPECIFIED NARCOTIC [Concomitant]

REACTIONS (6)
  - BLOOD CALCIUM DECREASED [None]
  - BLOOD GLUCOSE INCREASED [None]
  - CARDIO-RESPIRATORY ARREST [None]
  - NARCOTIC INTOXICATION [None]
  - PAIN [None]
  - PANCREATIC DISORDER [None]
